FAERS Safety Report 10474174 (Version 1)
Quarter: 2014Q3

REPORT INFORMATION
  Report Type: Spontaneous
  Country: US (occurrence: US)
  Receive Date: 20140924
  Receipt Date: 20140924
  Transmission Date: 20150326
  Serious: No
  Sender: FDA-Public Use
  Company Number: US-TEVA-510058USA

PATIENT
  Sex: Female
  Weight: 54.48 kg

DRUGS (9)
  1. REMERON [Concomitant]
     Active Substance: MIRTAZAPINE
     Indication: INSOMNIA
  2. PREDNISONE. [Concomitant]
     Active Substance: PREDNISONE
     Indication: AUTOIMMUNE DISORDER
  3. EDLUAR [Concomitant]
     Active Substance: ZOLPIDEM TARTRATE
     Indication: INSOMNIA
  4. FENTORA [Suspect]
     Active Substance: FENTANYL CITRATE
     Indication: ABDOMINAL PAIN
     Route: 002
     Dates: end: 2012
  5. ZANAFLEX [Concomitant]
     Active Substance: TIZANIDINE HYDROCHLORIDE
     Indication: MYALGIA
  6. ACTIQ [Suspect]
     Active Substance: FENTANYL CITRATE
     Indication: ABDOMINAL PAIN
     Route: 048
     Dates: end: 2012
  7. METOPROLOL [Concomitant]
     Active Substance: METOPROLOL
     Indication: HYPERTENSION
  8. NIRAVAM [Concomitant]
     Active Substance: ALPRAZOLAM
     Indication: ANXIETY
  9. DURAGESIC [Suspect]
     Active Substance: FENTANYL
     Route: 065

REACTIONS (2)
  - Anaemia [Unknown]
  - Off label use [Unknown]
